FAERS Safety Report 6670736-0 (Version None)
Quarter: 2010Q2

REPORT INFORMATION
  Report Type: 
  Country: None (occurrence: None)
  Receive Date: 20100405
  Receipt Date: 20100326
  Transmission Date: 20101027
  Serious: No
  Sender: FDA-Public Use
  Company Number: 009404

PATIENT
  Sex: Female
  Weight: 82.7 kg

DRUGS (7)
  1. LEVETIRACETAM [Suspect]
     Indication: CONVULSION
     Dosage: (1500 MG, 500 MG MORNING DOSE, 1000 MG EVENING DOSE ORAL), (750 MG ORAL)
     Route: 048
     Dates: end: 20090711
  2. LEVETIRACETAM [Suspect]
     Indication: CONVULSION
     Dosage: (1500 MG, 500 MG MORNING DOSE, 1000 MG EVENING DOSE ORAL), (750 MG ORAL)
     Route: 048
     Dates: start: 20090711, end: 20100315
  3. LEVETIRACETAM [Suspect]
     Indication: CONVULSION
     Dosage: (10 ML BID ORAL)
     Route: 048
     Dates: start: 20100315
  4. TOPAMAX [Concomitant]
  5. METFORMIN HCL [Concomitant]
  6. RAMIPRIL [Concomitant]
  7. NEBIVOLOL [Concomitant]

REACTIONS (2)
  - CONVULSION [None]
  - MEDICATION RESIDUE [None]
